FAERS Safety Report 6029497-0 (Version None)
Quarter: 2009Q1

REPORT INFORMATION
  Report Type: 
  Country: None (occurrence: None)
  Receive Date: 20090106
  Receipt Date: 20081229
  Transmission Date: 20090719
  Serious: Yes (Hospitalization)
  Sender: FDA-Public Use
  Company Number: AU-MERCK-0812AUS00334

PATIENT
  Age: 81 Year
  Sex: Female
  Weight: 86 kg

DRUGS (2)
  1. FOSAMAX [Suspect]
     Indication: OSTEOPOROSIS
     Route: 048
     Dates: start: 20060605, end: 20080701
  2. FOSAMAX [Suspect]
     Route: 048
     Dates: start: 19990729, end: 20060604

REACTIONS (2)
  - FEMUR FRACTURE [None]
  - OFF LABEL USE [None]
